FAERS Safety Report 16849083 (Version 1)
Quarter: 2019Q3

REPORT INFORMATION
  Report Type: Spontaneous
  Country: US (occurrence: US)
  Receive Date: 20190925
  Receipt Date: 20190925
  Transmission Date: 20191005
  Serious: No
  Sender: FDA-Public Use
  Company Number: US-BIOGEN-2019BI00782266

PATIENT
  Age: 46 Year
  Sex: Male

DRUGS (3)
  1. TECFIDERA [Suspect]
     Active Substance: DIMETHYL FUMARATE
     Indication: MULTIPLE SCLEROSIS
     Route: 065
     Dates: start: 20190827
  2. TECFIDERA [Suspect]
     Active Substance: DIMETHYL FUMARATE
     Route: 048
     Dates: start: 201908
  3. TECFIDERA [Suspect]
     Active Substance: DIMETHYL FUMARATE
     Dosage: FREQUENCY: 120 MG PER DAY
     Route: 065
     Dates: start: 20190829

REACTIONS (7)
  - Multiple sclerosis [Not Recovered/Not Resolved]
  - Headache [Unknown]
  - Rash [Recovered/Resolved]
  - Hot flush [Unknown]
  - Abdominal discomfort [Recovered/Resolved]
  - Pruritus [Unknown]
  - Muscle strain [Not Recovered/Not Resolved]

NARRATIVE: CASE EVENT DATE: 201909
